FAERS Safety Report 6198540-0 (Version None)
Quarter: 2009Q2

REPORT INFORMATION
  Report Type: 
  Country: None (occurrence: None)
  Receive Date: 20090521
  Receipt Date: 20090519
  Transmission Date: 20091009
  Serious: Yes (Death, Life-Threatening, Hospitalization, Other)
  Sender: FDA-Public Use
  Company Number: PHHY2009BR19383

PATIENT
  Sex: Male

DRUGS (4)
  1. EXELON [Suspect]
     Indication: MEMORY IMPAIRMENT
     Dosage: 9 MG PER DAY
     Route: 048
  2. EXELON [Suspect]
     Indication: MULTIPLE SCLEROSIS
     Dosage: 12 MG PER DAY
     Dates: start: 20080301
  3. HYDROCHLOROTHIAZIDE [Concomitant]
     Indication: HYPERTENSION
  4. ATENOLOL [Concomitant]
     Indication: HYPERTENSION

REACTIONS (7)
  - ABDOMINAL NEOPLASM [None]
  - ANAEMIA [None]
  - CONDITION AGGRAVATED [None]
  - HAEMODIALYSIS [None]
  - ONCOLOGIC COMPLICATION [None]
  - RENAL FAILURE [None]
  - TRANSFUSION [None]
